FAERS Safety Report 19466773 (Version 1)
Quarter: 2021Q2

REPORT INFORMATION
  Report Type: Spontaneous
  Country: US (occurrence: US)
  Receive Date: 20210628
  Receipt Date: 20210628
  Transmission Date: 20210717
  Serious: Yes (Other)
  Sender: FDA-Public Use
  Company Number: US-LUPIN PHARMACEUTICALS INC.-2021-10445

PATIENT

DRUGS (3)
  1. MISOPROSTOL. [Suspect]
     Active Substance: MISOPROSTOL
     Indication: LABOUR INDUCTION
     Dosage: UNK
     Route: 064
  2. INSULIN [Suspect]
     Active Substance: INSULIN NOS
     Indication: TYPE 2 DIABETES MELLITUS
     Dosage: UNK (IN EXCESS OF 1200 UNITS DAILY)
     Route: 064
  3. OXYTOCIN. [Suspect]
     Active Substance: OXYTOCIN
     Indication: LABOUR INDUCTION
     Dosage: UNK
     Route: 064

REACTIONS (10)
  - Phrenic nerve injury [Unknown]
  - Foetal exposure during pregnancy [Unknown]
  - Skin laceration [Recovered/Resolved]
  - Encephalopathy [Unknown]
  - Respiratory failure [Unknown]
  - Paralysis [Unknown]
  - Infantile apnoea [Unknown]
  - Lactic acidosis [Unknown]
  - Injury to brachial plexus due to birth trauma [Unknown]
  - Premature baby [Unknown]
